FAERS Safety Report 9301425 (Version 2)
Quarter: 2013Q2

REPORT INFORMATION
  Report Type: Spontaneous
  Country: IT (occurrence: IT)
  Receive Date: 20130521
  Receipt Date: 20130626
  Transmission Date: 20140414
  Serious: Yes (Hospitalization)
  Sender: FDA-Public Use
  Company Number: IT-BAYER-2013-060518

PATIENT
  Age: 68 Year
  Sex: Male

DRUGS (2)
  1. CARDIOASPIRIN [Suspect]
     Indication: ENDARTERECTOMY
     Dosage: 50 MG, QD
     Route: 048
     Dates: start: 20070101, end: 20130429
  2. RAMIPRIL [Concomitant]
     Indication: HYPERTENSION
     Dosage: DAILY DOSE 5 MG
     Route: 048

REACTIONS (2)
  - Subdural haematoma [Recovering/Resolving]
  - Haemorrhage [Recovering/Resolving]
